FAERS Safety Report 5151670-4 (Version None)
Quarter: 2006Q4

REPORT INFORMATION
  Report Type: 
  Country: None (occurrence: None)
  Receive Date: 20061109
  Receipt Date: 20061025
  Transmission Date: 20070319
  Serious: Yes (Hospitalization)
  Sender: FDA-Public Use
  Company Number: US018609

PATIENT
  Age: 62 Year
  Sex: Female
  Weight: 75.4 kg

DRUGS (9)
  1. ARSENIC TRIOXIDE [Suspect]
     Indication: MYELOFIBROSIS
     Dosage: 19 MG QD, INTRAVENOUS DRIP
     Route: 041
     Dates: start: 20061016, end: 20061020
  2. THALIDOMIDE [Concomitant]
  3. ASCORBIC ACID [Concomitant]
  4. DECADRON [Concomitant]
  5. PREDNISONE TAB [Concomitant]
  6. MAGNESIUM OXIDE [Concomitant]
  7. POTASSIUM CHLORIDE [Concomitant]
  8. DAPSONE [Concomitant]
  9. MOXIFLOXACIN HCL [Concomitant]

REACTIONS (6)
  - DECREASED APPETITE [None]
  - FATIGUE [None]
  - GAIT DISTURBANCE [None]
  - HYPOTENSION [None]
  - MUSCULAR WEAKNESS [None]
  - PYREXIA [None]
